APPROVED DRUG PRODUCT: NADOLOL
Active Ingredient: NADOLOL
Strength: 80MG
Dosage Form/Route: TABLET;ORAL
Application: A074368 | Product #001
Applicant: TEVA PHARMACEUTICALS USA
Approved: Aug 31, 1994 | RLD: No | RS: No | Type: DISCN